FAERS Safety Report 12691381 (Version 2)
Quarter: 2016Q3

REPORT INFORMATION
  Report Type: Spontaneous
  Country: BR (occurrence: BR)
  Receive Date: 20160826
  Receipt Date: 20160927
  Transmission Date: 20161109
  Serious: No
  Sender: FDA-Public Use
  Company Number: PHHY2016BR117482

PATIENT
  Sex: Male
  Weight: 45 kg

DRUGS (2)
  1. COBALAMIN [Concomitant]
     Active Substance: COBALAMIN
     Indication: MALNUTRITION
     Route: 065
  2. RITALIN [Suspect]
     Active Substance: METHYLPHENIDATE HYDROCHLORIDE
     Indication: ATTENTION DEFICIT/HYPERACTIVITY DISORDER
     Dosage: 1 DF, BID (1 TABLET IN THE MORNING AND 1 TABLET AFTER LUNCH)
     Route: 048
     Dates: start: 201506

REACTIONS (3)
  - Headache [Recovered/Resolved]
  - Urticaria [Recovered/Resolved]
  - Vomiting [Recovered/Resolved]
